FAERS Safety Report 9308835 (Version 1)
Quarter: 2013Q2

REPORT INFORMATION
  Report Type: Spontaneous
  Country: US (occurrence: US)
  Receive Date: 20130524
  Receipt Date: 20130524
  Transmission Date: 20140414
  Serious: No
  Sender: FDA-Public Use
  Company Number: US-009507513-1305USA010937

PATIENT
  Age: 42 Year
  Sex: Female

DRUGS (1)
  1. SINGULAIR [Suspect]
     Indication: MULTIPLE ALLERGIES
     Dosage: 1 DF, QD

REACTIONS (4)
  - Abnormal behaviour [Unknown]
  - Personality change [Unknown]
  - Amnesia [Unknown]
  - Alcohol use [Unknown]
